FAERS Safety Report 6087904-1 (Version None)
Quarter: 2009Q1

REPORT INFORMATION
  Report Type: 
  Country: None (occurrence: None)
  Receive Date: 20090219
  Receipt Date: 20090219
  Transmission Date: 20090719
  Serious: Yes (Life-Threatening, Disabling)
  Sender: FDA-Public Use
  Company Number: None

PATIENT
  Age: 53 Year
  Sex: Male
  Weight: 73.9363 kg

DRUGS (2)
  1. ZOCOR [Suspect]
     Indication: BLOOD CHOLESTEROL INCREASED
     Dosage: 30 MG 1 DAILY ORAL
     Route: 048
     Dates: start: 19940101
  2. ZOCOR [Suspect]
     Indication: BLOOD CHOLESTEROL INCREASED
     Dosage: 30 MG 1 DAILY ORAL
     Route: 048
     Dates: start: 20010701

REACTIONS (3)
  - DRUG PRESCRIBING ERROR [None]
  - HEPATITIS C [None]
  - MYALGIA [None]
